FAERS Safety Report 6558643-5 (Version None)
Quarter: 2010Q1

REPORT INFORMATION
  Report Type: 
  Country: None (occurrence: None)
  Receive Date: 20100129
  Receipt Date: 20100119
  Transmission Date: 20100710
  Serious: Yes (Death)
  Sender: FDA-Public Use
  Company Number: US-WATSON-2010-00653

PATIENT
  Sex: Male

DRUGS (4)
  1. FENTANYL-100 [Suspect]
     Indication: DRUG ABUSE
     Dosage: 1 PATCH, SINGLE USE
     Route: 048
     Dates: start: 20100109, end: 20100109
  2. XANAX [Suspect]
     Indication: DRUG ABUSE
     Dosage: UNK
     Route: 048
  3. VICODIN [Suspect]
     Indication: DRUG ABUSE
     Dosage: UNK
     Route: 048
  4. DARVOCET [Suspect]
     Indication: DRUG ABUSE
     Dosage: UNK
     Route: 048

REACTIONS (4)
  - ACCIDENTAL OVERDOSE [None]
  - INTENTIONAL DRUG MISUSE [None]
  - PULMONARY CONGESTION [None]
  - PULMONARY OEDEMA [None]
